FAERS Safety Report 21601864 (Version 1)
Quarter: 2022Q4

REPORT INFORMATION
  Report Type: Other
  Country: FR (occurrence: FR)
  Receive Date: 20221116
  Receipt Date: 20221116
  Transmission Date: 20230112
  Serious: Yes (Hospitalization)
  Sender: FDA-Public Use
  Company Number: None

PATIENT

DRUGS (2)
  1. AZITHROMYCIN [Suspect]
     Active Substance: AZITHROMYCIN
     Indication: Bronchitis
     Dosage: 1000 MILLIGRAM, QD
     Route: 048
     Dates: start: 20221010, end: 20221012
  2. BETAMETHASONE [Suspect]
     Active Substance: BETAMETHASONE
     Indication: Bronchitis
     Dosage: 6 MILLIGRAM, QD
     Route: 048
     Dates: start: 20221010, end: 20221012

REACTIONS (1)
  - Atrial fibrillation [Recovered/Resolved]

NARRATIVE: CASE EVENT DATE: 20221011
